FAERS Safety Report 15248210 (Version 1)
Quarter: 2018Q3

REPORT INFORMATION
  Report Type: Spontaneous
  Country: US (occurrence: US)
  Receive Date: 20180715
  Receipt Date: 20180715
  Transmission Date: 20181010
  Serious: No
  Sender: FDA-Public Use
  Company Number: None

PATIENT
  Age: 42 Year
  Sex: Female
  Weight: 82.35 kg

DRUGS (2)
  1. CHILDREN^S ALLEGRA ALLERGY [Suspect]
     Active Substance: FEXOFENADINE HYDROCHLORIDE
     Indication: MULTIPLE ALLERGIES
     Dosage: ?          QUANTITY:10 MILLILITER;?
     Route: 048
     Dates: start: 20180712, end: 20180714
  2. LEVOTHYROXINE. [Concomitant]
     Active Substance: LEVOTHYROXINE

REACTIONS (5)
  - Abdominal discomfort [None]
  - Middle insomnia [None]
  - Abdominal tenderness [None]
  - Dysphagia [None]
  - Abdominal pain upper [None]

NARRATIVE: CASE EVENT DATE: 20180712
